FAERS Safety Report 6252575-8 (Version None)
Quarter: 2009Q3

REPORT INFORMATION
  Report Type: 
  Country: None (occurrence: None)
  Receive Date: 20090701
  Receipt Date: 20090618
  Transmission Date: 20100115
  Serious: Yes (Other)
  Sender: FDA-Public Use
  Company Number: US-BAYER-200924381NA

PATIENT
  Sex: Female

DRUGS (1)
  1. AVELOX [Suspect]
     Indication: SINUSITIS
     Dosage: TOTAL DAILY DOSE: 400 MG  UNIT DOSE: 400 MG

REACTIONS (7)
  - ANAPHYLACTIC REACTION [None]
  - BRADYCARDIA [None]
  - CYANOSIS [None]
  - DISORIENTATION [None]
  - HYPERHIDROSIS [None]
  - HYPOTENSION [None]
  - RASH [None]
